FAERS Safety Report 8276257-6 (Version None)
Quarter: 2012Q2

REPORT INFORMATION
  Report Type: 
  Country: None (occurrence: None)
  Receive Date: 20120412
  Receipt Date: 20120409
  Transmission Date: 20120825
  Serious: Yes (Death, Hospitalization, Other)
  Sender: FDA-Public Use
  Company Number: PHHY2012SA030108

PATIENT
  Age: 28 Year
  Sex: Male

DRUGS (1)
  1. EXJADE [Suspect]
     Dosage: UNK
     Route: 048

REACTIONS (2)
  - CARDIAC DISORDER [None]
  - VENTRICULAR REMODELING [None]
